FAERS Safety Report 9743309 (Version 2)
Quarter: 2013Q4

REPORT INFORMATION
  Report Type: Spontaneous
  Country: US (occurrence: US)
  Receive Date: 20131210
  Receipt Date: 20131210
  Transmission Date: 20140711
  Serious: No
  Sender: FDA-Public Use
  Company Number: US-GILEAD-2009-0025581

PATIENT
  Sex: Female
  Weight: 54.88 kg

DRUGS (11)
  1. LETAIRIS [Suspect]
     Indication: PULMONARY ARTERIAL HYPERTENSION
     Route: 048
     Dates: start: 20090909, end: 20091118
  2. LASIX [Concomitant]
  3. CARDIZEM [Concomitant]
  4. PROTONIX [Concomitant]
  5. PRINIVIL [Concomitant]
  6. PLAVIX [Concomitant]
  7. ASPIRIN [Concomitant]
  8. REVATIO [Concomitant]
  9. ASACOL [Concomitant]
  10. CENTRUM SILVER [Concomitant]
  11. POTASSIUM CHLORIDE [Concomitant]

REACTIONS (2)
  - Liver injury [Unknown]
  - Liver function test abnormal [Unknown]
